FAERS Safety Report 4880940-X (Version None)
Quarter: 2005Q4

REPORT INFORMATION
  Report Type: 
  Country: None (occurrence: None)
  Receive Date: 20051223
  Receipt Date: 20050929
  Transmission Date: 20060501
  Serious: No
  Sender: FDA-Public Use
  Company Number: 05P-163-0312328-00

PATIENT
  Age: 66 Year
  Sex: Female
  Weight: 95.2554 kg

DRUGS (15)
  1. HUMIRA [Suspect]
     Indication: RHEUMATOID ARTHRITIS
     Dosage: 40 MG, 1 IN 2 WK, SUBCUTANEOUS ; 40 MG, 1 IN 1 WK, SUBCUTANEOUS
     Route: 058
     Dates: start: 20050101, end: 20050401
  2. HUMIRA [Suspect]
     Indication: RHEUMATOID ARTHRITIS
     Dosage: 40 MG, 1 IN 2 WK, SUBCUTANEOUS ; 40 MG, 1 IN 1 WK, SUBCUTANEOUS
     Route: 058
     Dates: start: 20050401
  3. METHOTREXATE [Concomitant]
  4. INSULIN LISPRO [Concomitant]
  5. ISOPHANE INSULIN [Concomitant]
  6. PREDNISONE [Concomitant]
  7. SALBUTAMOL [Concomitant]
  8. UNSPECIFIED STUDY MEDICATION [Concomitant]
  9. LEVOTHYROXINE SODIUM [Concomitant]
  10. NORTRIPTYLINE HCL [Concomitant]
  11. LOVASTATIN [Concomitant]
  12. TEMAZEPAM [Concomitant]
  13. PROPACET 100 [Concomitant]
  14. PARACETAMOL [Concomitant]
  15. FOLIC ACID [Concomitant]

REACTIONS (1)
  - WEIGHT INCREASED [None]
